FAERS Safety Report 23828496 (Version 1)
Quarter: 2024Q2

REPORT INFORMATION
  Report Type: Spontaneous
  Country: US (occurrence: US)
  Receive Date: 20240508
  Receipt Date: 20240508
  Transmission Date: 20240715
  Serious: No
  Sender: FDA-Public Use
  Company Number: US-TEVA-VS-3189244

PATIENT
  Sex: Male

DRUGS (1)
  1. PIMECROLIMUS [Suspect]
     Active Substance: PIMECROLIMUS
     Indication: Oral herpes
     Route: 065
     Dates: start: 20240417

REACTIONS (4)
  - Skin burning sensation [Unknown]
  - Product administered at inappropriate site [Unknown]
  - Product prescribing issue [Unknown]
  - Product prescribing error [Unknown]

NARRATIVE: CASE EVENT DATE: 20240417
